FAERS Safety Report 8509840-0 (Version None)
Quarter: 2012Q3

REPORT INFORMATION
  Report Type: 
  Country: None (occurrence: None)
  Receive Date: 20120713
  Receipt Date: 20110614
  Transmission Date: 20120928
  Serious: No
  Sender: FDA-Public Use
  Company Number: US-FOUGERA-2012FO000128

PATIENT
  Sex: Female

DRUGS (2)
  1. CETAPHIL /02314901/ [Concomitant]
     Indication: PRODUCT USED FOR UNKNOWN INDICATION
  2. METRONIDAZOLE [Suspect]
     Indication: ROSACEA
     Route: 061

REACTIONS (1)
  - DRY SKIN [None]
